FAERS Safety Report 14113479 (Version 1)
Quarter: 2017Q4

REPORT INFORMATION
  Report Type: Spontaneous
  Country: NO (occurrence: NO)
  Receive Date: 20171023
  Receipt Date: 20171023
  Transmission Date: 20180321
  Serious: Yes (Death, Other)
  Sender: FDA-Public Use
  Company Number: NO-ASTRAZENECA-2017SF06223

PATIENT
  Age: 767 Month
  Sex: Male

DRUGS (2)
  1. LYNPARZA [Suspect]
     Active Substance: OLAPARIB
     Indication: PROSTATE CANCER
     Route: 048
  2. LYNPARZA [Suspect]
     Active Substance: OLAPARIB
     Indication: PROSTATE CANCER
     Route: 048
     Dates: start: 201704

REACTIONS (4)
  - Product use in unapproved indication [Unknown]
  - Off label use [Fatal]
  - Death [Fatal]
  - Pneumonitis [Unknown]

NARRATIVE: CASE EVENT DATE: 201704
